FAERS Safety Report 7073654-1 (Version None)
Quarter: 2010Q4

REPORT INFORMATION
  Report Type: 
  Country: None (occurrence: None)
  Receive Date: 20101028
  Receipt Date: 20101028
  Transmission Date: 20110411
  Serious: Yes (Other)
  Sender: FDA-Public Use
  Company Number: None

PATIENT
  Age: 13 Month
  Sex: Male
  Weight: 9.9791 kg

DRUGS (1)
  1. HYLANDS TEETHING TABLETS [Suspect]
     Indication: TEETHING
     Dosage: 3 TABLETS PER NIGHT PO
     Route: 048
     Dates: start: 20100405, end: 20101027

REACTIONS (4)
  - CONSTIPATION [None]
  - FALL [None]
  - IRRITABILITY [None]
  - PRODUCT QUALITY ISSUE [None]
